FAERS Safety Report 7383778-7 (Version None)
Quarter: 2011Q1

REPORT INFORMATION
  Report Type: 
  Country: None (occurrence: None)
  Receive Date: 20110330
  Receipt Date: 20110315
  Transmission Date: 20110831
  Serious: Yes (Hospitalization)
  Sender: FDA-Public Use
  Company Number: US-BIOGENIDEC-2011BI005152

PATIENT
  Age: 68 Year
  Sex: Male

DRUGS (3)
  1. AVONEX [Suspect]
     Route: 030
     Dates: start: 20030101
  2. SEDATING MEDICATION (NOS) [Concomitant]
  3. AVONEX [Suspect]
     Indication: MULTIPLE SCLEROSIS
     Route: 030
     Dates: start: 20000601, end: 20030101

REACTIONS (13)
  - LETHARGY [None]
  - FALL [None]
  - BALANCE DISORDER [None]
  - HEADACHE [None]
  - DISORIENTATION [None]
  - GAIT DISTURBANCE [None]
  - FATIGUE [None]
  - INCOHERENT [None]
  - DYSARTHRIA [None]
  - DIZZINESS [None]
  - NEUROPATHY PERIPHERAL [None]
  - NAUSEA [None]
  - TREMOR [None]
